FAERS Safety Report 5708008-0 (Version None)
Quarter: 2008Q2

REPORT INFORMATION
  Report Type: 
  Country: None (occurrence: None)
  Receive Date: 20080417
  Receipt Date: 20080404
  Transmission Date: 20081010
  Serious: Yes (Other)
  Sender: FDA-Public Use
  Company Number: JP-SANOFI-SYNTHELABO-A01200803550

PATIENT
  Age: 77 Year
  Sex: Male

DRUGS (5)
  1. LENDORMIN [Concomitant]
     Indication: DRUG USE FOR UNKNOWN INDICATION
     Dosage: 0.25 MG
     Route: 050
     Dates: start: 20070323
  2. HALCION [Concomitant]
     Indication: DRUG USE FOR UNKNOWN INDICATION
     Dosage: 0.25 MG
     Route: 050
     Dates: start: 20070402
  3. EVAMYL [Concomitant]
     Indication: DRUG USE FOR UNKNOWN INDICATION
     Dosage: 2 MG
     Route: 050
     Dates: start: 20070608
  4. AMOBAN [Concomitant]
     Indication: DRUG USE FOR UNKNOWN INDICATION
     Dosage: 7.5 MG
     Route: 050
     Dates: start: 20070507, end: 20070807
  5. MYSLEE [Suspect]
     Indication: DRUG USE FOR UNKNOWN INDICATION
     Dosage: 10 MG
     Route: 050
     Dates: start: 20070325

REACTIONS (1)
  - DYSKINESIA [None]
